FAERS Safety Report 12855694 (Version 2)
Quarter: 2016Q4

REPORT INFORMATION
  Report Type: Spontaneous
  Country: MY (occurrence: MY)
  Receive Date: 20161017
  Receipt Date: 20161101
  Transmission Date: 20170207
  Serious: Yes (Hospitalization, Other)
  Sender: FDA-Public Use
  Company Number: MY-CONCORDIA PHARMACEUTICALS INC.-GSH201610-005212

PATIENT
  Age: 50 Year
  Sex: Male

DRUGS (1)
  1. HYDROXYCHLOROQUINE [Suspect]
     Active Substance: HYDROXYCHLOROQUINE
     Indication: OSTEOARTHRITIS
     Route: 065

REACTIONS (3)
  - Deafness [Unknown]
  - Tinnitus [Not Recovered/Not Resolved]
  - Therapeutic response unexpected [Unknown]
